FAERS Safety Report 8814517 (Version 1)
Quarter: 2012Q4

REPORT INFORMATION
  Report Type: 
  Country: US (occurrence: US)
  Receive Date: 20120928
  Receipt Date: 20120928
  Transmission Date: 20130627
  Serious: Yes (Other)
  Sender: FDA-Public Use
  Company Number: US-BAYER-2012-083360

PATIENT
  Age: 41 Year
  Sex: Male
  Weight: 97.07 kg

DRUGS (6)
  1. XARELTO [Suspect]
     Indication: CEREBROVASCULAR ACCIDENT PROPHYLAXIS
     Dosage: 20 mg, UNK
     Route: 048
     Dates: start: 20120801, end: 20120807
  2. XARELTO [Interacting]
     Indication: ATRIAL FIBRILLATION
  3. ACETYLSALICYLIC ACID (} 100 MG) [Interacting]
     Dosage: 325 mg, UNK
     Route: 048
     Dates: end: 20120802
  4. CARDIZEM [Concomitant]
     Route: 048
  5. VITAMIN B12 [Concomitant]
     Route: 048
  6. LISINOPRIL [Concomitant]

REACTIONS (2)
  - Rectal haemorrhage [Recovering/Resolving]
  - Gingival bleeding [Recovered/Resolved]
